FAERS Safety Report 6045852-7 (Version None)
Quarter: 2009Q1

REPORT INFORMATION
  Report Type: 
  Country: None (occurrence: None)
  Receive Date: 20090121
  Receipt Date: 20090113
  Transmission Date: 20090719
  Serious: Yes (Disabling)
  Sender: FDA-Public Use
  Company Number: BR-B.I. PHARMACEUTICALS,INC./RIDGEFIELD-2009-BR-00005BR

PATIENT
  Age: 69 Year
  Sex: Female

DRUGS (3)
  1. SIFROL [Suspect]
     Indication: PARKINSON'S DISEASE
     Dosage: REFER TO NARRATIVE
     Route: 048
     Dates: start: 20081201
  2. LEVODOPA [Concomitant]
  3. MANTIDAN [Concomitant]

REACTIONS (6)
  - DYSSTASIA [None]
  - EYE MOVEMENT DISORDER [None]
  - GAIT DISTURBANCE [None]
  - MEDICATION ERROR [None]
  - SLEEP DISORDER [None]
  - SOMNOLENCE [None]
